FAERS Safety Report 6604732-6 (Version None)
Quarter: 2010Q1

REPORT INFORMATION
  Report Type: 
  Country: None (occurrence: None)
  Receive Date: 20100226
  Receipt Date: 20091119
  Transmission Date: 20100710
  Serious: No
  Sender: FDA-Public Use
  Company Number: US-BRISTOL-MYERS SQUIBB COMPANY-14857452

PATIENT

DRUGS (1)
  1. ONGLYZA [Suspect]
     Indication: DIABETES MELLITUS
     Dosage: DURATION OF THERAPY=2 MONTHS
     Route: 048

REACTIONS (1)
  - RASH [None]
